FAERS Safety Report 15927733 (Version 3)
Quarter: 2024Q3

REPORT INFORMATION
  Report Type: Spontaneous
  Country: CA (occurrence: CA)
  Receive Date: 20190206
  Receipt Date: 20240703
  Transmission Date: 20241017
  Serious: Yes (Other)
  Sender: BAYER
  Company Number: CA-BAYER-2019-006922

PATIENT
  Age: 27 Year
  Sex: Female
  Weight: 90.703 kg

DRUGS (1)
  1. MIRENA [Suspect]
     Active Substance: LEVONORGESTREL
     Dosage: 20?G/DAY
     Route: 015
     Dates: start: 20140327, end: 20190111

REACTIONS (5)
  - Ectopic pregnancy with contraceptive device [Recovered/Resolved]
  - Ruptured ectopic pregnancy [None]
  - Haemoperitoneum [None]
  - Drug ineffective [None]
  - Endometriosis [None]

NARRATIVE: CASE EVENT DATE: 20180102
